FAERS Safety Report 6327278-1 (Version None)
Quarter: 2009Q3

REPORT INFORMATION
  Report Type: 
  Country: None (occurrence: None)
  Receive Date: 20090825
  Receipt Date: 20090811
  Transmission Date: 20100115
  Serious: Yes (Hospitalization)
  Sender: FDA-Public Use
  Company Number: US-WATSON-2009-06438

PATIENT
  Sex: Female

DRUGS (4)
  1. OXYCODONE HYDROCHLORIDE/ACETAMINOPHEN 10/325 MG (WATSON LABORATORIES) [Suspect]
     Indication: ANALGESIA
     Dosage: 1 TABLET, Q4-5H
     Route: 048
     Dates: start: 20020101
  2. MOMETASONE FUROATE [Suspect]
     Indication: PRURITUS
     Dosage: APPLIED TO VAGINAL RECTAL AREA
     Route: 061
     Dates: end: 20090101
  3. GLYBURIDE [Concomitant]
     Indication: DIABETES MELLITUS
     Dosage: UNK
     Route: 048
  4. SYNTHROID [Concomitant]
     Indication: THYROID HORMONE REPLACEMENT THERAPY
     Dosage: UNK
     Route: 048
     Dates: start: 19690101

REACTIONS (8)
  - BACTERAEMIA [None]
  - CHILLS [None]
  - CONFUSIONAL STATE [None]
  - DELUSION [None]
  - MUCOSAL EXCORIATION [None]
  - PRURITUS GENERALISED [None]
  - PYREXIA [None]
  - UROSEPSIS [None]
